FAERS Safety Report 7354288-8 (Version None)
Quarter: 2011Q1

REPORT INFORMATION
  Report Type: 
  Country: None (occurrence: None)
  Receive Date: 20110316
  Receipt Date: 20110309
  Transmission Date: 20110831
  Serious: No
  Sender: FDA-Public Use
  Company Number: US-BIOGENIDEC-2011BI009267

PATIENT
  Age: 55 Year
  Sex: Female

DRUGS (3)
  1. TYSABRI [Suspect]
     Indication: MULTIPLE SCLEROSIS
     Route: 042
     Dates: start: 20090326
  2. COUGH DROP (NOS) [Concomitant]
     Indication: COUGH
  3. COUGH  MEDICATIONS (NOS) [Concomitant]
     Indication: COUGH

REACTIONS (5)
  - CENTRAL NERVOUS SYSTEM LESION [None]
  - MUSCLE CONTRACTIONS INVOLUNTARY [None]
  - HYPOAESTHESIA [None]
  - HEADACHE [None]
  - FALL [None]
